FAERS Safety Report 4490030-6 (Version None)
Quarter: 2004Q4

REPORT INFORMATION
  Report Type: 
  Country: None (occurrence: None)
  Receive Date: 20041027
  Receipt Date: 20041025
  Transmission Date: 20050328
  Serious: No
  Sender: FDA-Public Use
  Company Number: TAP2004Q01361

PATIENT
  Age: 66 Year
  Sex: Male

DRUGS (1)
  1. PREVACID [Suspect]
     Indication: GASTRITIS
     Dosage: 30 MG, ONE DAILY IN THE EVENING, PER ORAL
     Route: 048
     Dates: start: 20041023

REACTIONS (2)
  - DIZZINESS [None]
  - VISION BLURRED [None]
